FAERS Safety Report 13744854 (Version 1)
Quarter: 2017Q3

REPORT INFORMATION
  Report Type: Spontaneous
  Country: US (occurrence: US)
  Receive Date: 20170712
  Receipt Date: 20170712
  Transmission Date: 20171127
  Serious: No
  Sender: FDA-Public Use
  Company Number: US-PFIZER INC-2017300967

PATIENT
  Sex: Female

DRUGS (1)
  1. VENLAFAXINE HCL [Suspect]
     Active Substance: VENLAFAXINE HYDROCHLORIDE
     Dosage: 100 MG

REACTIONS (3)
  - Night sweats [Unknown]
  - Hot flush [Unknown]
  - Nightmare [Unknown]
